FAERS Safety Report 12428757 (Version 1)
Quarter: 2016Q2

REPORT INFORMATION
  Report Type: Spontaneous
  Country: JP (occurrence: JP)
  Receive Date: 20160602
  Receipt Date: 20160602
  Transmission Date: 20160815
  Serious: Yes (Hospitalization, Other)
  Sender: FDA-Public Use
  Company Number: JP-REGENERON PHARMACEUTICALS, INC.-2016-17246

PATIENT

DRUGS (18)
  1. EYLEA [Suspect]
     Active Substance: AFLIBERCEPT
     Dosage: 2 MG, ONCE, OD
     Route: 031
     Dates: start: 20140908, end: 20140908
  2. EYLEA [Suspect]
     Active Substance: AFLIBERCEPT
     Dosage: 2 MG, ONCE, OD
     Route: 031
     Dates: start: 20141215, end: 20141215
  3. EYLEA [Suspect]
     Active Substance: AFLIBERCEPT
     Dosage: 2 MG, ONCE, OD
     Route: 031
     Dates: start: 20150119, end: 20150119
  4. EYLEA [Suspect]
     Active Substance: AFLIBERCEPT
     Dosage: 2 MG, ONCE, OD
     Route: 031
     Dates: start: 20150415, end: 20150415
  5. EYLEA [Suspect]
     Active Substance: AFLIBERCEPT
     Dosage: 2 MG, ONCE, OD
     Route: 031
     Dates: start: 20150708, end: 20150708
  6. EYLEA [Suspect]
     Active Substance: AFLIBERCEPT
     Dosage: 2 MG, ONCE, OD
     Route: 031
     Dates: start: 20150930, end: 20150930
  7. EYLEA [Suspect]
     Active Substance: AFLIBERCEPT
     Dosage: 2 MG, ONCE, OD
     Route: 031
     Dates: start: 20150216, end: 20150216
  8. ZYLORIC [Concomitant]
     Active Substance: ALLOPURINOL
     Indication: HYPERURICAEMIA
     Dosage: UNK
     Route: 048
  9. EYLEA [Suspect]
     Active Substance: AFLIBERCEPT
     Dosage: 2 MG, ONCE, OD
     Route: 031
     Dates: start: 20150819, end: 20150819
  10. EYLEA [Suspect]
     Active Substance: AFLIBERCEPT
     Dosage: 2 MG, ONCE, OD
     Route: 031
     Dates: start: 20160113, end: 20160113
  11. EYLEA [Suspect]
     Active Substance: AFLIBERCEPT
     Dosage: 2 MG, ONCE, OD
     Route: 031
     Dates: start: 20160406, end: 20160406
  12. LIPITOR [Concomitant]
     Active Substance: ATORVASTATIN CALCIUM
     Indication: HYPERLIPIDAEMIA
     Dosage: UNK
     Route: 048
  13. EYLEA [Suspect]
     Active Substance: AFLIBERCEPT
     Dosage: 2 MG, ONCE, OD
     Route: 031
     Dates: start: 20150318, end: 20150318
  14. EYLEA [Suspect]
     Active Substance: AFLIBERCEPT
     Dosage: 2 MG, ONCE, OD
     Route: 031
     Dates: start: 20141006, end: 20141006
  15. EYLEA [Suspect]
     Active Substance: AFLIBERCEPT
     Dosage: 2 MG, ONCE, OD
     Route: 031
     Dates: start: 20151116, end: 20151116
  16. MICARDIS [Concomitant]
     Active Substance: TELMISARTAN
     Indication: HYPERTENSION
     Dosage: UNK
     Route: 048
  17. EYLEA [Suspect]
     Active Substance: AFLIBERCEPT
     Indication: AGE-RELATED MACULAR DEGENERATION
     Dosage: 2 MG, ONCE, OD
     Route: 031
     Dates: start: 20140811, end: 20140811
  18. EYLEA [Suspect]
     Active Substance: AFLIBERCEPT
     Dosage: 2 MG, ONCE, OD
     Route: 031
     Dates: start: 20150527, end: 20150527

REACTIONS (2)
  - Cerebral infarction [Unknown]
  - IIIrd nerve paralysis [Unknown]

NARRATIVE: CASE EVENT DATE: 20160511
